FAERS Safety Report 12910150 (Version 1)
Quarter: 2016Q4

REPORT INFORMATION
  Report Type: Spontaneous
  Country: US (occurrence: US)
  Receive Date: 20161102
  Receipt Date: 20161102
  Transmission Date: 20170207
  Serious: Yes (Disabling)
  Sender: FDA-Public Use
  Company Number: None

PATIENT
  Age: 70 Year
  Sex: Male
  Weight: 110.7 kg

DRUGS (1)
  1. ZOLPIDEM [Suspect]
     Active Substance: ZOLPIDEM\ZOLPIDEM TARTRATE
     Route: 048
     Dates: start: 20120823, end: 20161005

REACTIONS (6)
  - Hyperhidrosis [None]
  - Confusional state [None]
  - Delirium [None]
  - Coordination abnormal [None]
  - Disorientation [None]
  - Memory impairment [None]

NARRATIVE: CASE EVENT DATE: 20161005
